FAERS Safety Report 8179101-0 (Version None)
Quarter: 2012Q1

REPORT INFORMATION
  Report Type: 
  Country: None (occurrence: None)
  Receive Date: 20120227
  Receipt Date: 20120214
  Transmission Date: 20120608
  Serious: Yes (Hospitalization)
  Sender: FDA-Public Use
  Company Number: 1000028576

PATIENT
  Sex: Male

DRUGS (6)
  1. ESCITALOPRAM OXALATE [Suspect]
     Indication: DEPRESSION
     Dates: start: 20111129, end: 20111203
  2. TENORMIN [Concomitant]
  3. ATACAND [Concomitant]
  4. LERCANIDIPINE [Concomitant]
  5. ATORVASTATIN CALCIUM [Concomitant]
  6. COUMADIN [Suspect]
     Dosage: 10 MG (10 MG,1 IN 1 D), ORAL
     Route: 048
     Dates: end: 20111203

REACTIONS (3)
  - HEPATITIS CHOLESTATIC [None]
  - CYTOLYTIC HEPATITIS [None]
  - INTERNATIONAL NORMALISED RATIO INCREASED [None]
